FAERS Safety Report 9275452 (Version 1)
Quarter: 2013Q2

REPORT INFORMATION
  Report Type: Spontaneous
  Country: US (occurrence: US)
  Receive Date: 20130507
  Receipt Date: 20130507
  Transmission Date: 20140414
  Serious: No
  Sender: FDA-Public Use
  Company Number: US-PFIZER INC-2013139811

PATIENT
  Age: 71 Year
  Sex: Female
  Weight: 59.86 kg

DRUGS (4)
  1. XELJANZ [Suspect]
     Indication: RHEUMATOID ARTHRITIS
     Dosage: 5 MG, 1X/DAY
     Route: 048
     Dates: start: 2013, end: 2013
  2. XELJANZ [Suspect]
     Dosage: 5 MG, 2X/DAY
     Route: 048
     Dates: start: 2013, end: 201304
  3. PREDNISONE [Concomitant]
     Dosage: UNK
  4. PLAQUENIL [Concomitant]
     Dosage: UNK

REACTIONS (6)
  - Infection [Unknown]
  - Influenza like illness [Unknown]
  - Vomiting [Unknown]
  - Local swelling [Unknown]
  - Dysphagia [Unknown]
  - Tremor [Unknown]
